FAERS Safety Report 23264428 (Version 3)
Quarter: 2024Q3

REPORT INFORMATION
  Report Type: Spontaneous
  Country: JP (occurrence: JP)
  Receive Date: 20231205
  Receipt Date: 20240729
  Transmission Date: 20241016
  Serious: Yes (Hospitalization, Other)
  Sender: BRISTOL MYERS SQUIBB
  Company Number: JP-BRISTOL-MYERS SQUIBB COMPANY-2023-173526

PATIENT
  Age: 8 Decade
  Sex: Female
  Weight: 58 kg

DRUGS (4)
  1. YERVOY [Suspect]
     Active Substance: IPILIMUMAB
     Indication: Malignant melanoma stage IV
     Dosage: ON DAY 61, 1ST COURSE OF IPI + NIVO.
     Route: 041
  2. YERVOY [Suspect]
     Active Substance: IPILIMUMAB
     Dosage: ON DAY 82, 2ND COURSE
     Route: 041
  3. OPDIVO [Suspect]
     Active Substance: NIVOLUMAB
     Indication: Malignant melanoma stage IV
     Dosage: ON DAY 61, 1ST COURSE OF IPI + NIVO.
     Route: 041
  4. OPDIVO [Suspect]
     Active Substance: NIVOLUMAB
     Dosage: ON DAY 82, 2ND COURSE
     Route: 041

REACTIONS (5)
  - Febrile neutropenia [Unknown]
  - Malaise [Unknown]
  - Agranulocytosis [Unknown]
  - Delirium [Unknown]
  - Respiratory tract haemorrhage [Unknown]
